FAERS Safety Report 10409478 (Version 1)
Quarter: 2014Q3

REPORT INFORMATION
  Report Type: Spontaneous
  Country: US (occurrence: None)
  Receive Date: 20140825
  Receipt Date: 20140825
  Transmission Date: 20150326
  Serious: No
  Sender: FDA-Public Use
  Company Number: None

PATIENT
  Age: 88 Year
  Sex: Male

DRUGS (11)
  1. DEXAMETHASONE. [Concomitant]
     Active Substance: DEXAMETHASONE
  2. AMLODIPINE [Concomitant]
     Active Substance: AMLODIPINE BESYLATE
  3. ZOLPIDEM [Concomitant]
     Active Substance: ZOLPIDEM\ZOLPIDEM TARTRATE
  4. K-TABS [Concomitant]
  5. LOSARTAN [Concomitant]
     Active Substance: LOSARTAN
  6. FINASTERIDE. [Concomitant]
     Active Substance: FINASTERIDE
  7. BENZON [Concomitant]
  8. REVLIMID [Suspect]
     Active Substance: LENALIDOMIDE
     Indication: PLASMA CELL MYELOMA
     Dosage: 15 MG DAILY X21D/28D
     Route: 048
     Dates: start: 20140728
  9. WARFARIN [Concomitant]
     Active Substance: WARFARIN
  10. TRIAMTERENE AND HYDROCHLOROTHIAZIDE [Concomitant]
     Active Substance: HYDROCHLOROTHIAZIDE\TRIAMTERENE
  11. REVLIMID [Suspect]
     Active Substance: LENALIDOMIDE
     Dosage: 10MG ?DAILY X21D/28D?ORALLY
     Route: 048
     Dates: start: 20140624, end: 20140727

REACTIONS (2)
  - Abdominal pain upper [None]
  - Constipation [None]

NARRATIVE: CASE EVENT DATE: 20140813
